FAERS Safety Report 8115698-4 (Version None)
Quarter: 2011Q4

REPORT INFORMATION
  Report Type: 
  Country: None (occurrence: None)
  Receive Date: 20111227
  Receipt Date: 20111107
  Transmission Date: 20120403
  Serious: Yes (Other)
  Sender: FDA-Public Use
  Company Number: PHEH2011US01276

PATIENT
  Age: 37 Year
  Sex: Female
  Weight: 114.3 kg

DRUGS (1)
  1. GILENYA [Suspect]
     Indication: MULTIPLE SCLEROSIS
     Dosage: 0.5 MG, DAILY, ORAL
     Route: 048
     Dates: start: 20110720, end: 20111024

REACTIONS (6)
  - ABNORMAL SENSATION IN EYE [None]
  - HEADACHE [None]
  - MULTIPLE SCLEROSIS [None]
  - PAIN [None]
  - NAUSEA [None]
  - INFLUENZA LIKE ILLNESS [None]
